FAERS Safety Report 6040229-2 (Version None)
Quarter: 2009Q1

REPORT INFORMATION
  Report Type: 
  Country: None (occurrence: None)
  Receive Date: 20090116
  Receipt Date: 20080627
  Transmission Date: 20090719
  Serious: No
  Sender: FDA-Public Use
  Company Number: US-BRISTOL-MYERS SQUIBB COMPANY-14047773

PATIENT
  Age: 60 Year
  Sex: Male

DRUGS (4)
  1. ABILIFY [Suspect]
     Indication: BIPOLAR II DISORDER
     Dates: start: 20071128
  2. ANDROGEL [Concomitant]
  3. LISINOPRIL [Concomitant]
     Route: 048
  4. LEVOTHROID [Concomitant]
     Route: 048

REACTIONS (5)
  - FEELING ABNORMAL [None]
  - NAUSEA [None]
  - SYNCOPE [None]
  - URINARY INCONTINENCE [None]
  - VOMITING [None]
